FAERS Safety Report 8716991 (Version 3)
Quarter: 2012Q4

REPORT INFORMATION
  Report Type: 
  Country: NL (occurrence: NL)
  Receive Date: 20120810
  Receipt Date: 20120920
  Transmission Date: 20130627
  Serious: Yes (Other)
  Sender: FDA-Public Use
  Company Number: NL-ELI_LILLY_AND_COMPANY-NL201207008518

PATIENT
  Age: 20 Year
  Sex: Female

DRUGS (3)
  1. OLANZAPINE [Suspect]
     Indication: PSYCHOTIC DISORDER
     Dosage: 10 mg, unknown
     Dates: start: 20120719
  2. OXAZEPAM [Concomitant]
     Indication: ANXIETY
     Dosage: 10 mg, UNK
     Route: 048
     Dates: start: 20120719, end: 201208
  3. TEMAZEPAM [Concomitant]
     Dosage: 20 mg, UNK
     Route: 048
     Dates: start: 20120719, end: 201208

REACTIONS (1)
  - Blood prolactin increased [Unknown]
